FAERS Safety Report 6649995-6 (Version None)
Quarter: 2010Q1

REPORT INFORMATION
  Report Type: 
  Country: None (occurrence: None)
  Receive Date: 20100324
  Receipt Date: 20100324
  Transmission Date: 20100710
  Serious: Yes (Other)
  Sender: FDA-Public Use
  Company Number: None

PATIENT
  Age: 66 Year
  Sex: Female
  Weight: 54.4316 kg

DRUGS (1)
  1. RANITIDINE HCL [Suspect]
     Indication: BLOOD PRESSURE
     Dosage: 150 MG TAB ONE DAILY ORAL
     Route: 048
     Dates: start: 20091224

REACTIONS (8)
  - COUGH [None]
  - DECREASED APPETITE [None]
  - FATIGUE [None]
  - FEELING ABNORMAL [None]
  - HEADACHE [None]
  - NAUSEA [None]
  - POOR QUALITY SLEEP [None]
  - VOMITING [None]
